FAERS Safety Report 7694375-8 (Version None)
Quarter: 2011Q3

REPORT INFORMATION
  Report Type: 
  Country: None (occurrence: None)
  Receive Date: 20110819
  Receipt Date: 20110815
  Transmission Date: 20111222
  Serious: Yes (Disabling, Other)
  Sender: FDA-Public Use
  Company Number: US-MERCK-1106USA03112

PATIENT
  Age: 43 Year
  Sex: Female

DRUGS (14)
  1. FOSAMAX [Suspect]
     Indication: OSTEOPOROSIS
     Dosage: 37.5 MG
     Route: 048
     Dates: start: 20000101, end: 20060101
  2. CYANOCOBALAMIN [Concomitant]
     Route: 051
  3. CALCIUM (UNSPECIFIED) AND VITAMIN D (UNSPECIFIED) [Concomitant]
     Route: 065
  4. FLONASE [Concomitant]
     Indication: SEASONAL ALLERGY
     Dosage: 2 SPRAYS EACH NOSTRIL
     Route: 065
  5. FIBERCON [Concomitant]
     Route: 065
  6. NORVASC [Concomitant]
     Indication: BLOOD PRESSURE
     Route: 065
  7. HYDROCHLOROTHIAZIDE [Concomitant]
     Indication: BLOOD PRESSURE
     Route: 048
  8. VITAMINS (UNSPECIFIED) [Concomitant]
     Route: 065
  9. GLUCOSAMINE [Concomitant]
     Dosage: HA JOINT FORMULA-GLUCOSAMINE
     Route: 065
  10. FOSAMAX PLUS D [Suspect]
     Indication: OSTEOPOROSIS
     Route: 048
     Dates: start: 20060101, end: 20090101
  11. COREG [Concomitant]
     Indication: BLOOD PRESSURE
     Route: 065
  12. LISINOPRIL [Concomitant]
     Indication: BLOOD PRESSURE
     Route: 048
  13. HORMONES (UNSPECIFIED) [Concomitant]
     Route: 065
     Dates: start: 19920101, end: 20000101
  14. COUMADIN [Concomitant]
     Route: 065

REACTIONS (23)
  - PAIN IN EXTREMITY [None]
  - HYPOAESTHESIA [None]
  - CONSTIPATION [None]
  - DYSPNOEA [None]
  - OSTEONECROSIS OF JAW [None]
  - DEPRESSION [None]
  - GASTROOESOPHAGEAL REFLUX DISEASE [None]
  - BONE NEOPLASM MALIGNANT [None]
  - MUSCULOSKELETAL DISORDER [None]
  - HYPERTONIC BLADDER [None]
  - GINGIVAL BLEEDING [None]
  - BONE DISORDER [None]
  - CHEST PAIN [None]
  - OSTEOMYELITIS [None]
  - ANXIETY [None]
  - ARTHROPATHY [None]
  - GINGIVAL DISORDER [None]
  - BACK DISORDER [None]
  - OSTEONECROSIS [None]
  - RHEUMATOID ARTHRITIS [None]
  - MENTAL DISORDER [None]
  - JAW FRACTURE [None]
  - DRUG ADMINISTRATION ERROR [None]
